FAERS Safety Report 4679659-X (Version None)
Quarter: 2005Q2

REPORT INFORMATION
  Report Type: 
  Country: None (occurrence: None)
  Receive Date: 20050602
  Receipt Date: 20050221
  Transmission Date: 20051028
  Serious: Yes (Hospitalization)
  Sender: FDA-Public Use
  Company Number: FR-JNJFOC-20050600035

PATIENT
  Age: 25 Year
  Sex: Male

DRUGS (3)
  1. CONTRAMAL [Suspect]
     Route: 049
  2. PROXALYOC [Suspect]
     Route: 065
  3. ZOMIG [Suspect]
     Indication: MIGRAINE
     Route: 065

REACTIONS (1)
  - LOSS OF CONSCIOUSNESS [None]
